FAERS Safety Report 10199595 (Version 1)
Quarter: 2014Q2

REPORT INFORMATION
  Report Type: Report from Study
  Country: US (occurrence: US)
  Receive Date: 20140527
  Receipt Date: 20140527
  Transmission Date: 20141212
  Serious: Yes (Other)
  Sender: FDA-Public Use
  Company Number: US-BAXTER-2014BAX027185

PATIENT
  Sex: 0

DRUGS (2)
  1. DOBUTAMINE  HYDROCHLORIDE IN 5% DEXTROSE INJECTION [Suspect]
     Indication: CARDIAC PHARMACOLOGIC STRESS TEST
     Route: 065
  2. DOBUTAMINE  HYDROCHLORIDE IN 5% DEXTROSE INJECTION [Suspect]
     Indication: OFF LABEL USE

REACTIONS (1)
  - Ventricular tachycardia [Recovered/Resolved]
